FAERS Safety Report 6547315-9 (Version None)
Quarter: 2010Q1

REPORT INFORMATION
  Report Type: 
  Country: None (occurrence: None)
  Receive Date: 20100122
  Receipt Date: 20100112
  Transmission Date: 20100710
  Serious: Yes (Death)
  Sender: FDA-Public Use
  Company Number: US-KINGPHARMUSA00001-K201000033

PATIENT
  Age: 53 Year
  Sex: Male
  Weight: 90.703 kg

DRUGS (6)
  1. SONATA [Suspect]
     Dosage: 30 MG, QHS
  2. AMITRIPTYLINE HCL [Suspect]
     Dosage: UNK
  3. NORTRIPTYLINE HCL [Suspect]
     Dosage: UNK
  4. QUETIAPINE [Suspect]
     Dosage: UNK
  5. PHENOBARBITAL TAB [Suspect]
     Dosage: UNK
  6. CLONAZEPAM [Suspect]
     Dosage: UNK

REACTIONS (2)
  - ACCIDENTAL DEATH [None]
  - MULTIPLE DRUG OVERDOSE [None]
